FAERS Safety Report 18666860 (Version 1)
Quarter: 2020Q4

REPORT INFORMATION
  Report Type: Spontaneous
  Country: PL (occurrence: PL)
  Receive Date: 20201227
  Receipt Date: 20201227
  Transmission Date: 20210114
  Serious: Yes (Other)
  Sender: FDA-Public Use
  Company Number: PL-ROCHE-2715375

PATIENT
  Age: 79 Year
  Sex: Female

DRUGS (1)
  1. GAZYVARO [Suspect]
     Active Substance: OBINUTUZUMAB
     Indication: CHRONIC LYMPHOCYTIC LEUKAEMIA
     Route: 042

REACTIONS (4)
  - Tumour lysis syndrome [Unknown]
  - Pulmonary congestion [Unknown]
  - Liver injury [Unknown]
  - General physical health deterioration [Unknown]

NARRATIVE: CASE EVENT DATE: 20201109
